FAERS Safety Report 10083982 (Version 2)
Quarter: 2014Q2

REPORT INFORMATION
  Report Type: Spontaneous
  Country: JP (occurrence: JP)
  Receive Date: 20140417
  Receipt Date: 20140505
  Transmission Date: 20141212
  Serious: Yes (Other)
  Sender: FDA-Public Use
  Company Number: JP-SA-2014SA048490

PATIENT
  Sex: 0

DRUGS (1)
  1. ALLEGRA FX [Suspect]
     Indication: PRODUCT USED FOR UNKNOWN INDICATION
     Route: 048
     Dates: start: 201404, end: 201404

REACTIONS (2)
  - Cough [Unknown]
  - Sensation of foreign body [Unknown]
